FAERS Safety Report 7083199-0 (Version None)
Quarter: 2010Q4

REPORT INFORMATION
  Report Type: 
  Country: None (occurrence: None)
  Receive Date: 20101104
  Receipt Date: 20090203
  Transmission Date: 20110411
  Serious: No
  Sender: FDA-Public Use
  Company Number: US-KINGPHARMUSA00001-K200900113

PATIENT
  Sex: Female

DRUGS (1)
  1. FLECTOR [Suspect]

REACTIONS (2)
  - ADVERSE EVENT [None]
  - MALAISE [None]
